FAERS Safety Report 9381410 (Version 1)
Quarter: 2013Q3

REPORT INFORMATION
  Report Type: Spontaneous
  Country: JP (occurrence: JP)
  Receive Date: 20130703
  Receipt Date: 20130703
  Transmission Date: 20140515
  Serious: Yes (Other)
  Sender: FDA-Public Use
  Company Number: PHHY2013JP062672

PATIENT
  Sex: Male

DRUGS (5)
  1. NEORAL [Suspect]
     Indication: APLASTIC ANAEMIA
     Dosage: 250 MG, DAILY
     Route: 048
     Dates: start: 20130316
  2. NEORAL [Suspect]
     Dosage: 50 MG, DAILY
     Route: 048
     Dates: start: 20130607
  3. NEORAL [Suspect]
     Dosage: 150 MG, DAILY
     Route: 048
  4. NEORAL [Suspect]
     Dosage: 250 MG, DAILY
  5. BAKTAR [Suspect]
     Indication: ANTIFUNGAL PROPHYLAXIS
     Dosage: 1 DF, UNK
     Route: 048
     Dates: end: 201306

REACTIONS (3)
  - Renal disorder [Recovering/Resolving]
  - Blood creatinine increased [Recovering/Resolving]
  - Immunosuppressant drug level increased [Unknown]
